FAERS Safety Report 4481626-6 (Version None)
Quarter: 2004Q3

REPORT INFORMATION
  Report Type: 
  Country: None (occurrence: None)
  Receive Date: 20040921
  Receipt Date: 20040622
  Transmission Date: 20050211
  Serious: Yes (Death, Hospitalization)
  Sender: FDA-Public Use
  Company Number: 167-20785-04060472(0)

PATIENT
  Age: 72 Year
  Sex: Male

DRUGS (8)
  1. THALOMID [Suspect]
     Indication: NON-SMALL CELL LUNG CANCER
     Dosage: 100 MG, QD, ORAL; 50 MG, QD, ORAL
     Route: 048
     Dates: start: 20040602, end: 20040607
  2. THALOMID [Suspect]
     Indication: NON-SMALL CELL LUNG CANCER
     Dosage: 100 MG, QD, ORAL; 50 MG, QD, ORAL
     Route: 048
     Dates: start: 20040608, end: 20040616
  3. GRANISETRON (GRANISETRON) [Suspect]
     Dosage: 1 MG, QD, INTRAVENOUS
     Route: 042
     Dates: start: 20040527, end: 20040528
  4. GEMCITABINE (GEMCITABINE) (UNKNOWN) [Suspect]
     Indication: NON-SMALL CELL LUNG CANCER
  5. CARBOPLATIN [Suspect]
     Indication: NON-SMALL CELL LUNG CANCER
  6. MANEVAC (MANEVAC) [Concomitant]
  7. MAXALON (METOCLOPRAMIDE HYDROCHLORIDE) [Concomitant]
  8. COVERSYL (PERINDOPRIL) [Concomitant]

REACTIONS (5)
  - CONSTIPATION [None]
  - DEATH [None]
  - DISEASE PROGRESSION [None]
  - DYSPNOEA [None]
  - PLEURAL EFFUSION [None]
